FAERS Safety Report 24140784 (Version 1)
Quarter: 2024Q3

REPORT INFORMATION
  Report Type: Report from Study
  Country: US (occurrence: US)
  Receive Date: 20240726
  Receipt Date: 20240726
  Transmission Date: 20241017
  Serious: Yes (Other)
  Sender: UCB
  Company Number: US-UCBSA-2023008835

PATIENT
  Age: 44 Year
  Sex: Female

DRUGS (2)
  1. BRIVARACETAM [Suspect]
     Active Substance: BRIVARACETAM
     Indication: Epilepsy
     Dosage: 100 MILLIGRAM, 2X/DAY (BID)
  2. BRIVARACETAM [Suspect]
     Active Substance: BRIVARACETAM
     Indication: Seizure
     Dosage: 100 MILLIGRAM, DAILY, HALF OF HER PRESCRIBED DOSAGE DAILY.

REACTIONS (8)
  - Seizure [Not Recovered/Not Resolved]
  - Gastroenteritis viral [Recovering/Resolving]
  - Aura [Not Recovered/Not Resolved]
  - Malaise [Not Recovered/Not Resolved]
  - Product distribution issue [Unknown]
  - Intentional product use issue [Unknown]
  - Therapy interrupted [Unknown]
  - Drug ineffective [Unknown]

NARRATIVE: CASE EVENT DATE: 20240722
